FAERS Safety Report 23877664 (Version 1)
Quarter: 2024Q2

REPORT INFORMATION
  Report Type: Report from Study
  Country: US (occurrence: US)
  Receive Date: 20240521
  Receipt Date: 20240521
  Transmission Date: 20240716
  Serious: Yes (Other)
  Sender: FDA-Public Use
  Company Number: US-JNJFOC-20240537592

PATIENT
  Sex: Female

DRUGS (2)
  1. SPRAVATO [Suspect]
     Active Substance: ESKETAMINE
     Indication: Depression
  2. HUMIRA [Concomitant]
     Active Substance: ADALIMUMAB
     Indication: Arthritis

REACTIONS (4)
  - Autoimmune disorder [Unknown]
  - Fatigue [Unknown]
  - Inflammatory marker increased [Unknown]
  - Tremor [Unknown]
